FAERS Safety Report 4429492-9 (Version None)
Quarter: 2004Q3

REPORT INFORMATION
  Report Type: 
  Country: None (occurrence: None)
  Receive Date: 20040819
  Receipt Date: 20040811
  Transmission Date: 20050211
  Serious: Yes (Hospitalization)
  Sender: FDA-Public Use
  Company Number: FR-BRISTOL-MYERS SQUIBB COMPANY-12668554

PATIENT
  Age: 45 Year
  Sex: Male
  Weight: 60 kg

DRUGS (6)
  1. ZERIT [Suspect]
     Indication: HIV INFECTION
     Route: 048
     Dates: end: 20040304
  2. EPIVIR [Suspect]
     Indication: HIV INFECTION
     Route: 048
     Dates: end: 20040304
  3. VIRAMUNE [Suspect]
     Indication: HIV INFECTION
     Route: 048
     Dates: end: 20040304
  4. BACTRIM [Suspect]
     Dosage: DOSAGE FORM: TABLET
     Route: 048
     Dates: end: 20040304
  5. MALOCIDE [Concomitant]
  6. CLINDAMYCIN HCL [Concomitant]

REACTIONS (1)
  - PANCYTOPENIA [None]
